FAERS Safety Report 22636596 (Version 4)
Quarter: 2023Q4

REPORT INFORMATION
  Report Type: Spontaneous
  Country: US (occurrence: US)
  Receive Date: 20230623
  Receipt Date: 20231208
  Transmission Date: 20240109
  Serious: Yes (Other)
  Sender: FDA-Public Use
  Company Number: US-PFIZER INC-PV202300110773

PATIENT
  Age: 84 Year
  Sex: Female

DRUGS (1)
  1. XELJANZ [Suspect]
     Active Substance: TOFACITINIB CITRATE
     Dosage: UNK

REACTIONS (6)
  - Cerebrovascular accident [Not Recovered/Not Resolved]
  - Blindness [Unknown]
  - Dysgraphia [Unknown]
  - Speech disorder [Unknown]
  - Loss of personal independence in daily activities [Unknown]
  - Reading disorder [Unknown]
